FAERS Safety Report 25798335 (Version 1)
Quarter: 2025Q3

REPORT INFORMATION
  Report Type: Report from Study
  Country: US (occurrence: US)
  Receive Date: 20250913
  Receipt Date: 20250913
  Transmission Date: 20251021
  Serious: Yes (Hospitalization, Disabling)
  Sender: ABBVIE
  Company Number: US-ABBVIE-6454083

PATIENT
  Age: 83 Year
  Sex: Male

DRUGS (1)
  1. CREON [Suspect]
     Active Substance: PANCRELIPASE AMYLASE\PANCRELIPASE LIPASE\PANCRELIPASE PROTEASE
     Indication: Product used for unknown indication
     Route: 048

REACTIONS (3)
  - Cardiac failure congestive [Unknown]
  - Disability [Unknown]
  - Gait inability [Unknown]

NARRATIVE: CASE EVENT DATE: 20250101
